FAERS Safety Report 13095940 (Version 2)
Quarter: 2018Q3

REPORT INFORMATION
  Report Type: Spontaneous
  Country: US (occurrence: US)
  Receive Date: 20170109
  Receipt Date: 20180831
  Transmission Date: 20181010
  Serious: Yes (Hospitalization)
  Sender: FDA-Public Use
  Company Number: US-ACTELION-A-US2016-147511

PATIENT
  Age: 2 Year
  Sex: Male

DRUGS (13)
  1. ALBUTEROL. [Concomitant]
     Active Substance: ALBUTEROL
     Indication: DYSPNOEA
     Dosage: 90 MCG INHALE 2 PUFF TID PRN
     Route: 055
  2. OMEPRAZOLE. [Concomitant]
     Active Substance: OMEPRAZOLE
     Dosage: 2MG/ML TAKE 8.4 MG PO DAILY
     Route: 048
  3. ACETAMINOPHEN. [Concomitant]
     Active Substance: ACETAMINOPHEN
     Dosage: 160MG/5ML TAKE 5 ML Q4?6H PRN
  4. TRACLEER [Suspect]
     Active Substance: BOSENTAN
     Indication: PULMONARY ARTERIAL HYPERTENSION
     Dosage: 16 MG, BID
     Route: 048
     Dates: start: 20160207, end: 20161220
  5. KCL [Concomitant]
     Active Substance: POTASSIUM CHLORIDE
     Dosage: 20 MEQ/15ML TAKE 2 MEQ PO BID
     Route: 048
  6. VENTOLIN [Concomitant]
     Active Substance: ALBUTEROL SULFATE
     Dosage: 2 PUFFS, Q4HRS
     Route: 055
  7. TRACLEER [Suspect]
     Active Substance: BOSENTAN
     Dosage: 20 MG, BID
     Route: 048
     Dates: start: 20161220
  8. TRACLEER [Suspect]
     Active Substance: BOSENTAN
     Dosage: UNK MG, UNK
     Route: 048
     Dates: start: 20160122
  9. TRACLEER [Suspect]
     Active Substance: BOSENTAN
     Dosage: 32 MG, BID
     Route: 048
     Dates: end: 20180821
  10. FUROSEMIDE. [Concomitant]
     Active Substance: FUROSEMIDE
     Dosage: 10 MG/ML TAKE 12 MG PO BID
     Route: 048
  11. ZEGERID [Concomitant]
     Active Substance: OMEPRAZOLE\SODIUM BICARBONATE
     Dosage: 20?1,680
  12. CHOLECALCIFEROL [Concomitant]
     Active Substance: CHOLECALCIFEROL
     Dosage: 400 IU, UNK
     Route: 048
  13. BUDESONIDE. [Concomitant]
     Active Substance: BUDESONIDE
     Dosage: 0.5 MG, BID

REACTIONS (3)
  - Pulmonary arterial hypertension [Recovering/Resolving]
  - Catheterisation cardiac [Recovering/Resolving]
  - Off label use [Unknown]

NARRATIVE: CASE EVENT DATE: 20161220
